FAERS Safety Report 21403874 (Version 3)
Quarter: 2022Q4

REPORT INFORMATION
  Report Type: Spontaneous
  Country: AU (occurrence: AU)
  Receive Date: 20221003
  Receipt Date: 20221104
  Transmission Date: 20230112
  Serious: Yes (Other)
  Sender: FDA-Public Use
  Company Number: AU-BAYER-2022A133167

PATIENT
  Age: 42 Year
  Sex: Female

DRUGS (1)
  1. MIRENA [Suspect]
     Active Substance: LEVONORGESTREL
     Indication: Mass
     Dosage: 20?G/DAY
     Route: 015
     Dates: start: 20220401, end: 20220906

REACTIONS (11)
  - Blindness [Recovering/Resolving]
  - Dizziness [Recovering/Resolving]
  - Fatigue [Recovering/Resolving]
  - Bedridden [Recovering/Resolving]
  - Musculoskeletal stiffness [Recovering/Resolving]
  - Neck pain [Recovering/Resolving]
  - Headache [Recovering/Resolving]
  - Eye movement disorder [Recovering/Resolving]
  - Impaired work ability [Recovering/Resolving]
  - Off label use of device [None]
  - Device use issue [None]
